FAERS Safety Report 5867307-2 (Version None)
Quarter: 2008Q3

REPORT INFORMATION
  Report Type: 
  Country: None (occurrence: None)
  Receive Date: 20080829
  Receipt Date: 20080829
  Transmission Date: 20090109
  Serious: Yes (Hospitalization, Disabling, Other)
  Sender: FDA-Public Use
  Company Number: None

PATIENT
  Age: 64 Year
  Sex: Male

DRUGS (1)
  1. SIMVASTATIN [Suspect]
     Dosage: 40 MG EVERY DAY PO
     Route: 048
     Dates: start: 20080115, end: 20080725

REACTIONS (8)
  - CHILLS [None]
  - DIABETIC KETOACIDOSIS [None]
  - DIALYSIS [None]
  - LEGIONELLA SEROLOGY POSITIVE [None]
  - PAIN [None]
  - RENAL FAILURE ACUTE [None]
  - RHABDOMYOLYSIS [None]
  - WHITE BLOOD CELL COUNT INCREASED [None]
